FAERS Safety Report 7481279-9 (Version None)
Quarter: 2011Q2

REPORT INFORMATION
  Report Type: 
  Country: None (occurrence: None)
  Receive Date: 20110506
  Receipt Date: 20110414
  Transmission Date: 20111010
  Serious: Yes (Other)
  Sender: FDA-Public Use
  Company Number: 2026023-2011-0003

PATIENT
  Sex: Female

DRUGS (2)
  1. EAR WAX RELIEF; CAUSTICUM12XGRAPHITES15XLACHESIS12XLYCOPODIUM 12X [Suspect]
     Indication: PRURITUS
     Dosage: DROPS 1 TIME 001
     Dates: start: 20110413
  2. EAR WAX RELIEF; CAUSTICUM12XGRAPHITES15XLACHESIS12XLYCOPODIUM 12X [Suspect]
     Indication: EAR DISCOMFORT
     Dosage: DROPS 1 TIME 001
     Dates: start: 20110413

REACTIONS (9)
  - DEAFNESS UNILATERAL [None]
  - TINNITUS [None]
  - EAR HAEMORRHAGE [None]
  - TYMPANIC MEMBRANE PERFORATION [None]
  - EAR PAIN [None]
  - VISUAL IMPAIRMENT [None]
  - FEELING ABNORMAL [None]
  - EYE DISORDER [None]
  - DIPLOPIA [None]
